FAERS Safety Report 11314262 (Version 3)
Quarter: 2015Q4

REPORT INFORMATION
  Report Type: Report from Study
  Country: DE (occurrence: DE)
  Receive Date: 20150727
  Receipt Date: 20151020
  Transmission Date: 20160304
  Serious: Yes (Other)
  Sender: FDA-Public Use
  Company Number: DE-BAYER-2015-382796

PATIENT
  Age: 30 Year
  Sex: Female

DRUGS (2)
  1. IBUPROFEN [IBUPROFEN] [Concomitant]
     Active Substance: IBUPROFEN
     Indication: ADVERSE DRUG REACTION
     Dosage: 400 MG, BID
  2. BETAFERON [Suspect]
     Active Substance: INTERFERON BETA-1B
     Indication: MULTIPLE SCLEROSIS
     Dosage: 250 ?G, QOD
     Route: 058
     Dates: start: 20150601, end: 20151001

REACTIONS (9)
  - Circulatory collapse [Recovered/Resolved]
  - Hyperacusis [Recovering/Resolving]
  - Injection site reaction [Not Recovered/Not Resolved]
  - Irritability [Recovering/Resolving]
  - Dizziness [Recovered/Resolved]
  - Cervix carcinoma stage 0 [Recovering/Resolving]
  - Post procedural haemorrhage [None]
  - Aggression [Recovering/Resolving]
  - Dyspnoea [Recovered/Resolved]

NARRATIVE: CASE EVENT DATE: 2015
